FAERS Safety Report 23608231 (Version 3)
Quarter: 2024Q3

REPORT INFORMATION
  Report Type: Spontaneous
  Country: PR (occurrence: PR)
  Receive Date: 20240307
  Receipt Date: 20240722
  Transmission Date: 20241016
  Serious: Yes (Other)
  Sender: BRISTOL MYERS SQUIBB
  Company Number: PR-BRISTOL-MYERS SQUIBB COMPANY-2024-035308

PATIENT
  Age: 62 Year
  Sex: Female
  Weight: 92.99 kg

DRUGS (2)
  1. POMALYST [Suspect]
     Active Substance: POMALIDOMIDE
     Indication: Mantle cell lymphoma
     Dosage: TAKE ONE CAPSULE DAILY FOR 21 DAYS, REST FOR A WEEK. 28 DAY CYCLE
     Route: 048
     Dates: start: 20240207
  2. POMALYST [Suspect]
     Active Substance: POMALIDOMIDE
     Dosage: TAKE ONE CAPSULE DAILY FOR 21 DAYS, REST FOR A WEEK. 28 DAY CYCLE/TAKE ONE CAPSULE DAILY FOR 21 DAYS
     Route: 048
     Dates: start: 202405

REACTIONS (14)
  - Vulvovaginal burning sensation [Not Recovered/Not Resolved]
  - Vaginal disorder [Not Recovered/Not Resolved]
  - Dysuria [Not Recovered/Not Resolved]
  - Blood glucose increased [Not Recovered/Not Resolved]
  - Constipation [Not Recovered/Not Resolved]
  - Rectal haemorrhage [Not Recovered/Not Resolved]
  - Head discomfort [Not Recovered/Not Resolved]
  - Sinusitis [Not Recovered/Not Resolved]
  - Nasal congestion [Not Recovered/Not Resolved]
  - Oropharyngeal pain [Not Recovered/Not Resolved]
  - COVID-19 [Not Recovered/Not Resolved]
  - Off label use [Unknown]
  - Joint swelling [Not Recovered/Not Resolved]
  - Hypoaesthesia [Not Recovered/Not Resolved]

NARRATIVE: CASE EVENT DATE: 20240207
